FAERS Safety Report 4718373-9 (Version None)
Quarter: 2005Q3

REPORT INFORMATION
  Report Type: 
  Country: None (occurrence: None)
  Receive Date: 20050720
  Receipt Date: 20050621
  Transmission Date: 20060218
  Serious: Yes (Other)
  Sender: FDA-Public Use
  Company Number: 200515629GDDC

PATIENT
  Age: 26 Year
  Sex: Male

DRUGS (3)
  1. NICODERM CQ [Suspect]
     Route: 062
     Dates: start: 20040901, end: 20040901
  2. LAMOTRIGINE [Concomitant]
  3. CARBAMAZEPINE [Concomitant]

REACTIONS (6)
  - ELEVATED MOOD [None]
  - EXCITABILITY [None]
  - FEELING ABNORMAL [None]
  - LOGORRHOEA [None]
  - MANIA [None]
  - NIGHTMARE [None]
